FAERS Safety Report 4497745-4 (Version None)
Quarter: 2004Q4

REPORT INFORMATION
  Report Type: 
  Country: None (occurrence: None)
  Receive Date: 20041104
  Receipt Date: 20041025
  Transmission Date: 20050328
  Serious: Yes (Hospitalization)
  Sender: FDA-Public Use
  Company Number: 2004IM000866

PATIENT
  Age: 75 Year
  Sex: Male

DRUGS (2)
  1. ADVAFERON        (A643_ INTERFERON ALFACON-1) [Suspect]
     Indication: HEPATITIS C
     Dosage: 12 MU;QW;SUBCUTANEOUSS
     Route: 058
     Dates: start: 20040101
  2. URSODEOXYCHOLIC ACID [Concomitant]

REACTIONS (3)
  - INJECTION SITE INFLAMMATION [None]
  - INJECTION SITE ULCER [None]
  - SKIN ULCER [None]
